FAERS Safety Report 5339009-2 (Version None)
Quarter: 2007Q2

REPORT INFORMATION
  Report Type: 
  Country: None (occurrence: None)
  Receive Date: 20070525
  Receipt Date: 20070517
  Transmission Date: 20071010
  Serious: Yes (Hospitalization, Other)
  Sender: FDA-Public Use
  Company Number: 37214

PATIENT
  Age: 59 Year
  Sex: Female

DRUGS (1)
  1. DACARBAZINE [Suspect]
     Indication: MALIGNANT MELANOMA
     Dosage: INTRAVENOUS
     Route: 042
     Dates: start: 20070410

REACTIONS (2)
  - DYSPNOEA [None]
  - HAEMOPTYSIS [None]
